FAERS Safety Report 6973631-2 (Version None)
Quarter: 2010Q3

REPORT INFORMATION
  Report Type: 
  Country: None (occurrence: None)
  Receive Date: 20100909
  Receipt Date: 20100826
  Transmission Date: 20110219
  Serious: Yes (Hospitalization, Other)
  Sender: FDA-Public Use
  Company Number: US-ELI_LILLY_AND_COMPANY-US201008000317

PATIENT
  Sex: Female

DRUGS (4)
  1. FORTEO [Suspect]
     Indication: OSTEOPOROSIS
     Dosage: 20 UG, DAILY (1/D)
  2. COUMADIN [Concomitant]
     Dosage: 5 MG, 3/W
  3. COUMADIN [Concomitant]
     Dosage: 2.5 MG, 4/D
  4. TOPROL-XL [Concomitant]
     Dosage: 50 MG, DAILY (1/D)

REACTIONS (4)
  - ATRIAL FIBRILLATION [None]
  - DRUG HYPERSENSITIVITY [None]
  - ERYTHEMA [None]
  - LIPASE INCREASED [None]
